FAERS Safety Report 6117737-9 (Version None)
Quarter: 2009Q1

REPORT INFORMATION
  Report Type: 
  Country: None (occurrence: None)
  Receive Date: 20090314
  Receipt Date: 20090126
  Transmission Date: 20090719
  Serious: No
  Sender: FDA-Public Use
  Company Number: US-ABBOTT-09P-163-0500059-00

PATIENT

DRUGS (2)
  1. HUMIRA [Suspect]
     Indication: PSORIASIS
     Dosage: LOADING DOSE
     Dates: start: 20090124, end: 20090124
  2. SINGULAIR [Concomitant]
     Indication: ASTHMA
     Route: 058

REACTIONS (2)
  - INJECTION SITE HAEMATOMA [None]
  - INJECTION SITE PAIN [None]
